FAERS Safety Report 24536220 (Version 1)
Quarter: 2024Q4

REPORT INFORMATION
  Report Type: Report from Study
  Country: US (occurrence: US)
  Receive Date: 20241022
  Receipt Date: 20241022
  Transmission Date: 20250114
  Serious: Yes (Other)
  Sender: JAZZ
  Company Number: US-JAZZ PHARMACEUTICALS-2024-US-014379

PATIENT
  Sex: Female

DRUGS (1)
  1. XYWAV [Suspect]
     Active Substance: CALCIUM OXYBATE\MAGNESIUM OXYBATE\POTASSIUM OXYBATE\SODIUM OXYBATE
     Indication: Narcolepsy
     Dosage: 4.25GRAM FIRST DOSE AND 3.25 SECOND DOSE, TWICE NIGHTLY
     Dates: start: 202403

REACTIONS (3)
  - Hallucination, auditory [Unknown]
  - Nausea [Unknown]
  - Product dose omission issue [Unknown]
